FAERS Safety Report 18358397 (Version 1)
Quarter: 2020Q4

REPORT INFORMATION
  Report Type: Spontaneous
  Country: AU (occurrence: AU)
  Receive Date: 20201008
  Receipt Date: 20201008
  Transmission Date: 20210114
  Serious: Yes (Death, Life-Threatening, Hospitalization, Other)
  Sender: FDA-Public Use
  Company Number: AU-AMGEN-AUSSP2020158911

PATIENT
  Age: 60 Year
  Sex: Female

DRUGS (3)
  1. FILGRASTIM [Suspect]
     Active Substance: FILGRASTIM
     Indication: FEBRILE NEUTROPENIA
     Dosage: UNK
     Route: 065
  2. PIPERACILLIN. [Concomitant]
     Active Substance: PIPERACILLIN SODIUM
     Indication: FEBRILE NEUTROPENIA
     Dosage: UNK
  3. TAZOBACTAM [Concomitant]
     Active Substance: TAZOBACTAM
     Indication: FEBRILE NEUTROPENIA
     Dosage: UNK

REACTIONS (8)
  - Respiratory failure [Fatal]
  - Oesophageal candidiasis [Unknown]
  - Fungal sepsis [Unknown]
  - Drug ineffective [Unknown]
  - Septic embolus [Unknown]
  - Viraemia [Unknown]
  - Acute kidney injury [Fatal]
  - Herpes simplex [Unknown]
